FAERS Safety Report 7531711-7 (Version None)
Quarter: 2011Q2

REPORT INFORMATION
  Report Type: 
  Country: None (occurrence: None)
  Receive Date: 20110601
  Receipt Date: 20110518
  Transmission Date: 20111010
  Serious: Yes (Hospitalization)
  Sender: FDA-Public Use
  Company Number: UCM201105-000010

PATIENT
  Age: 49 Year
  Sex: Female

DRUGS (3)
  1. PREDNISONE [Concomitant]
     Dosage: 45 MG/DAY
  2. BISOPROLOL FUMARATE [Suspect]
     Dosage: 2.5 MG/DAY;
  3. CARBIMAZOLE [Suspect]
     Dosage: 45 MG/DAY;

REACTIONS (4)
  - CARDIAC FAILURE [None]
  - OEDEMA PERIPHERAL [None]
  - HYPERTHYROIDISM [None]
  - CARDIAC MURMUR [None]
